FAERS Safety Report 20311348 (Version 1)
Quarter: 2022Q1

REPORT INFORMATION
  Report Type: Spontaneous
  Country: US (occurrence: US)
  Receive Date: 20220107
  Receipt Date: 20220107
  Transmission Date: 20220423
  Serious: Yes (Other)
  Sender: FDA-Public Use
  Company Number: US-SANOFI-00918281

PATIENT
  Age: 51 Year
  Sex: Male

DRUGS (3)
  1. DUPIXENT [Suspect]
     Active Substance: DUPILUMAB
     Indication: Asthma
     Dosage: 400 MG, TOTAL
  2. DUPIXENT [Suspect]
     Active Substance: DUPILUMAB
     Dosage: 200 MG, QOW
  3. FASENRA [Concomitant]
     Active Substance: BENRALIZUMAB

REACTIONS (7)
  - Pneumonia [Not Recovered/Not Resolved]
  - Muscle spasms [Not Recovered/Not Resolved]
  - Fluid retention [Not Recovered/Not Resolved]
  - Hypoacusis [Not Recovered/Not Resolved]
  - Tinnitus [Not Recovered/Not Resolved]
  - Mass [Not Recovered/Not Resolved]
  - Muscle tightness [Not Recovered/Not Resolved]

NARRATIVE: CASE EVENT DATE: 20210101
